FAERS Safety Report 15282855 (Version 1)
Quarter: 2018Q3

REPORT INFORMATION
  Report Type: Spontaneous
  Country: DE (occurrence: DE)
  Receive Date: 20180816
  Receipt Date: 20180816
  Transmission Date: 20181010
  Serious: Yes (Disabling, Other)
  Sender: FDA-Public Use
  Company Number: DE-ASTRAZENECA-2018SF01104

PATIENT
  Sex: Female

DRUGS (6)
  1. SEROQUEL [Suspect]
     Active Substance: QUETIAPINE FUMARATE
     Route: 048
  2. DIPIPERON [Suspect]
     Active Substance: PIPAMPERONE
     Route: 065
  3. ABILIFY [Suspect]
     Active Substance: ARIPIPRAZOLE
     Route: 065
  4. ORFIRIL [Suspect]
     Active Substance: VALPROATE SODIUM
     Route: 065
  5. HALDOL [Suspect]
     Active Substance: HALOPERIDOL
     Route: 065
  6. RISPERDAL [Suspect]
     Active Substance: RISPERIDONE
     Route: 065

REACTIONS (4)
  - Optic nerve disorder [Unknown]
  - Blindness [Unknown]
  - Exostosis [Unknown]
  - Extraocular muscle disorder [Unknown]
